FAERS Safety Report 10290750 (Version 1)
Quarter: 2014Q3

REPORT INFORMATION
  Report Type: Spontaneous
  Country: IT (occurrence: None)
  Receive Date: 20140708
  Receipt Date: 20140708
  Transmission Date: 20150326
  Serious: Yes (Hospitalization)
  Sender: FDA-Public Use
  Company Number: AUR-APL-2014-07069

PATIENT
  Age: 85 Year
  Sex: Male

DRUGS (8)
  1. KCL-RETARD (POTASSIUM CHLORIDE) [Concomitant]
  2. PANTOPRAZOLE SODIUM (PANTOPRAZOLE SODIUM SESQUIHYDRATE) [Concomitant]
  3. SERETIDE (FLUTICASONE PROPHIONATE, SALMETEROL XINAFOATE) [Concomitant]
  4. CARDIOASPIRIN (ACETYLSALICYLIC ACID) [Concomitant]
     Active Substance: ASPIRIN
  5. LASIX [Suspect]
     Active Substance: FUROSEMIDE
     Indication: PRODUCT USED FOR UNKNOWN INDICATION
     Dosage: 250 MG, TOTAL, ORAL
     Route: 048
     Dates: start: 20140620, end: 20140620
  6. RAMIPRIL. [Suspect]
     Active Substance: RAMIPRIL
     Indication: HYPERTENSION
     Dosage: 2.5 MG, TOTAL, ORAL
     Route: 048
     Dates: start: 20140620, end: 20140620
  7. SPIRIVA [Concomitant]
     Active Substance: TIOTROPIUM BROMIDE MONOHYDRATE
  8. MADOPAR (BENSERAZIDE HYDROCHLORIDE, LEVODOPA) [Concomitant]

REACTIONS (2)
  - Hypotension [None]
  - Syncope [None]

NARRATIVE: CASE EVENT DATE: 20140620
